FAERS Safety Report 4750107-4 (Version None)
Quarter: 2005Q3

REPORT INFORMATION
  Report Type: 
  Country: None (occurrence: None)
  Receive Date: 20050819
  Receipt Date: 20050818
  Transmission Date: 20060218
  Serious: No
  Sender: FDA-Public Use
  Company Number: 005462

PATIENT
  Sex: Female

DRUGS (1)
  1. SEASONALE [Suspect]
     Dosage: 1.00 TABLET, QD, ORAL
     Route: 048
     Dates: start: 20050201

REACTIONS (1)
  - HYPERPROLACTINAEMIA [None]
